FAERS Safety Report 6663915-X (Version None)
Quarter: 2010Q2

REPORT INFORMATION
  Report Type: 
  Country: None (occurrence: None)
  Receive Date: 20100401
  Receipt Date: 20100326
  Transmission Date: 20101027
  Serious: Yes (Other)
  Sender: FDA-Public Use
  Company Number: FR-BRISTOL-MYERS SQUIBB COMPANY-15000219

PATIENT
  Age: 53 Year
  Sex: Male
  Weight: 73 kg

DRUGS (5)
  1. REYATAZ [Suspect]
     Indication: HIV INFECTION
     Route: 048
     Dates: start: 20071211, end: 20100112
  2. NORVIR [Suspect]
     Indication: HIV INFECTION
     Route: 048
     Dates: start: 20071211
  3. VIREAD [Suspect]
     Indication: HIV INFECTION
     Route: 048
     Dates: start: 20071211
  4. KIVEXA [Suspect]
     Indication: HIV INFECTION
     Dosage: 1DF- ABACAVIR 600MG, LAMIVUDINE300MG
     Route: 048
     Dates: start: 20071211
  5. FOSAMAX [Concomitant]
     Route: 048

REACTIONS (5)
  - CELL DEATH [None]
  - CHOLELITHIASIS [None]
  - CHOLESTASIS [None]
  - HEPATIC ENZYME ABNORMAL [None]
  - JAUNDICE [None]
